FAERS Safety Report 6373523-6 (Version None)
Quarter: 2009Q3

REPORT INFORMATION
  Report Type: 
  Country: None (occurrence: None)
  Receive Date: 20090924
  Receipt Date: 20090304
  Transmission Date: 20100115
  Serious: No
  Sender: FDA-Public Use
  Company Number: US-ASTRAZENECA-2009UW05738

PATIENT
  Age: 17086 Day
  Sex: Female

DRUGS (1)
  1. SEROQUEL [Suspect]
     Route: 048
     Dates: start: 20080304

REACTIONS (4)
  - DIARRHOEA [None]
  - HEADACHE [None]
  - MUSCULAR WEAKNESS [None]
  - PAIN [None]
